FAERS Safety Report 6609272-6 (Version None)
Quarter: 2010Q1

REPORT INFORMATION
  Report Type: 
  Country: None (occurrence: None)
  Receive Date: 20100224
  Receipt Date: 20100222
  Transmission Date: 20100710
  Serious: Yes (Hospitalization)
  Sender: FDA-Public Use
  Company Number: PI-04389-001

PATIENT
  Sex: Female

DRUGS (1)
  1. CHLORAPREP ONE-STEP [Suspect]
     Indication: PREOPERATIVE CARE
     Dosage: 26 ML, ONCE, TOPICAL
     Route: 061
     Dates: start: 20091101

REACTIONS (1)
  - APPLICATION SITE RASH [None]
